FAERS Safety Report 12759221 (Version 1)
Quarter: 2016Q3

REPORT INFORMATION
  Report Type: Spontaneous
  Country: US (occurrence: US)
  Receive Date: 20160916
  Receipt Date: 20160916
  Transmission Date: 20161109
  Serious: Yes (Death)
  Sender: FDA-Public Use
  Company Number: None

PATIENT
  Age: 81 Year
  Sex: Female

DRUGS (1)
  1. CAPECITABINE 500MG TEVA [Suspect]
     Active Substance: CAPECITABINE
     Indication: COLON CANCER
     Dosage: 1500MG BID FOR 2 WEEKS ON 1 WEEK OFF PO
     Route: 048
     Dates: start: 20160602, end: 20160623

REACTIONS (2)
  - Nausea [None]
  - Rash [None]

NARRATIVE: CASE EVENT DATE: 20160714
